FAERS Safety Report 9179564 (Version 1)
Quarter: 2012Q4

REPORT INFORMATION
  Report Type: Report from Study
  Country: US (occurrence: US)
  Receive Date: 20121029
  Receipt Date: 20121029
  Transmission Date: 20130627
  Serious: Yes (Hospitalization)
  Sender: FDA-Public Use
  Company Number: US-ABBOTT-12P-163-0972585-00

PATIENT
  Age: 47 Year
  Sex: Male

DRUGS (11)
  1. HUMIRA 40 MG/0.8 ML PEN [Suspect]
     Indication: CROHN^S DISEASE
     Dates: start: 20120621, end: 20120819
  2. WELCHOL [Concomitant]
     Indication: ANTIINFLAMMATORY THERAPY
  3. WELCHOL [Concomitant]
     Indication: GASTROINTESTINAL DISORDER
  4. PREDNISONE [Concomitant]
     Indication: CROHN^S DISEASE
  5. COLOZOL [Concomitant]
     Indication: ANTIINFLAMMATORY THERAPY
     Dosage: 3 Pills 3 times a day (9 piis total)
  6. COLOZOL [Concomitant]
     Indication: CROHN^S DISEASE
  7. SYNTHROID [Concomitant]
     Indication: THYROID DISORDER
     Dosage: Daily
  8. LISINOPRIL [Concomitant]
     Indication: HYPERTENSION
     Dosage: Every day
  9. VITAMIN D NOS [Concomitant]
     Indication: PRODUCT USED FOR UNKNOWN INDICATION
     Dosage: Every day
  10. B-12 [Concomitant]
     Indication: PRODUCT USED FOR UNKNOWN INDICATION
     Dosage: Every month
  11. LOPERAMIDE [Concomitant]
     Indication: PROPHYLAXIS AGAINST DIARRHOEA
     Dosage: Has not taken yet since he has been in the hospital

REACTIONS (4)
  - Crohn^s disease [Not Recovered/Not Resolved]
  - Clostridium difficile infection [Not Recovered/Not Resolved]
  - Diarrhoea [Not Recovered/Not Resolved]
  - Frequent bowel movements [Unknown]
